FAERS Safety Report 5346490-1 (Version None)
Quarter: 2007Q2

REPORT INFORMATION
  Report Type: 
  Country: None (occurrence: None)
  Receive Date: 20070605
  Receipt Date: 20070528
  Transmission Date: 20071010
  Serious: Yes (Other)
  Sender: FDA-Public Use
  Company Number: GB-PFIZER INC-2007041942

PATIENT
  Age: 45 Year
  Sex: Female

DRUGS (3)
  1. NELFINAVIR MESILATE [Suspect]
     Indication: PROPHYLAXIS AGAINST HIV INFECTION
     Dosage: DAILY DOSE:1250MG-FREQ: 2 X PER DAY
     Route: 048
     Dates: start: 20070303, end: 20070324
  2. COMBIVIR [Suspect]
     Indication: PROPHYLAXIS AGAINST HIV INFECTION
     Dosage: TEXT:1 DOSE FORM 2 X PER DAY
     Route: 048
     Dates: start: 20070303, end: 20070324
  3. LEVOTHYROXINE SODIUM [Concomitant]

REACTIONS (4)
  - ABDOMINAL DISCOMFORT [None]
  - ABDOMINAL DISTENSION [None]
  - LIVER FUNCTION TEST ABNORMAL [None]
  - NAUSEA [None]
